FAERS Safety Report 8932253 (Version 1)
Quarter: 2012Q4

REPORT INFORMATION
  Report Type: 
  Country: US (occurrence: US)
  Receive Date: 20121128
  Receipt Date: 20121128
  Transmission Date: 20130627
  Serious: No
  Sender: FDA-Public Use
  Company Number: US-ASTRAZENECA-2012SE84396

PATIENT
  Age: 70 Year
  Sex: Female
  Weight: 56.7 kg

DRUGS (7)
  1. NEXIUM [Suspect]
     Indication: GASTROOESOPHAGEAL REFLUX DISEASE
     Route: 048
     Dates: start: 201206, end: 201208
  2. NEXIUM [Suspect]
     Indication: GASTROOESOPHAGEAL REFLUX DISEASE
     Route: 048
     Dates: start: 201211
  3. XANAX [Concomitant]
     Indication: NERVE INJURY
  4. PROZAC [Concomitant]
     Indication: NERVE INJURY
  5. THYROID PILL ALMRAZOLAN [Concomitant]
     Indication: THYROID DISORDER
  6. WATER PILL [Concomitant]
  7. MALOXICAM [Concomitant]
     Indication: ARTHRITIS

REACTIONS (5)
  - Abdominal pain upper [Unknown]
  - Dry throat [Unknown]
  - Malaise [Unknown]
  - Vomiting [Unknown]
  - Intentional drug misuse [Unknown]
